FAERS Safety Report 8603557-X (Version None)
Quarter: 2012Q3

REPORT INFORMATION
  Report Type: 
  Country: None (occurrence: None)
  Receive Date: 20120817
  Receipt Date: 20120815
  Transmission Date: 20120928
  Serious: Yes (Life-Threatening, Hospitalization, Disabling)
  Sender: FDA-Public Use
  Company Number: PHHO2012US011915

PATIENT
  Sex: Male
  Weight: 89.2 kg

DRUGS (10)
  1. OXALIPLATIN [Concomitant]
     Indication: COLORECTAL CANCER
  2. DICLOFENAC [Concomitant]
  3. AFINITOR [Suspect]
     Indication: COLORECTAL CANCER
     Dosage: UNK
     Route: 048
     Dates: start: 20120809
  4. ACYCLOVIR [Concomitant]
  5. AMBIEN [Concomitant]
  6. FLUOROURACIL [Suspect]
     Indication: COLORECTAL CANCER
     Dosage: 1200 MG/M2, QD
     Dates: start: 20120809, end: 20120811
  7. FINASTERIDE [Concomitant]
  8. AVASTIN [Concomitant]
     Indication: COLORECTAL CANCER
     Dosage: UNK
  9. EMLA [Concomitant]
  10. BACLOFEN [Concomitant]

REACTIONS (1)
  - CARDIAC ARREST [None]
